FAERS Safety Report 7808390-4 (Version None)
Quarter: 2011Q4

REPORT INFORMATION
  Report Type: 
  Country: None (occurrence: None)
  Receive Date: 20111011
  Receipt Date: 20111011
  Transmission Date: 20120403
  Serious: Yes (Hospitalization)
  Sender: FDA-Public Use
  Company Number: None

PATIENT
  Sex: Female

DRUGS (1)
  1. ENBREL [Suspect]
     Indication: JUVENILE ARTHRITIS
     Dosage: 25 MG TWICE WEEK SQ
     Route: 058
     Dates: start: 20110901, end: 20110930

REACTIONS (3)
  - SINUSITIS [None]
  - CONDITION AGGRAVATED [None]
  - INFECTION [None]
